FAERS Safety Report 9828343 (Version 2)
Quarter: 2014Q2

REPORT INFORMATION
  Report Type: Spontaneous
  Country: US (occurrence: US)
  Receive Date: 20140117
  Receipt Date: 20140410
  Transmission Date: 20141212
  Serious: Yes (Death)
  Sender: FDA-Public Use
  Company Number: US-GLAXOSMITHKLINE-A1056575A

PATIENT
  Sex: Male

DRUGS (7)
  1. LAMICTAL [Suspect]
     Indication: PRODUCT USED FOR UNKNOWN INDICATION
     Dosage: 200MG PER DAY
     Route: 048
     Dates: start: 20130627
  2. PROPANOLOL [Concomitant]
  3. RESTORIL [Concomitant]
  4. TRAZODONE [Concomitant]
  5. VIIBRYD [Concomitant]
  6. VYVANSE [Concomitant]
  7. XANAX [Concomitant]

REACTIONS (2)
  - Death [Fatal]
  - Influenza [Unknown]
